FAERS Safety Report 13800966 (Version 1)
Quarter: 2017Q3

REPORT INFORMATION
  Report Type: Spontaneous
  Country: US (occurrence: US)
  Receive Date: 20170727
  Receipt Date: 20170727
  Transmission Date: 20171127
  Serious: No
  Sender: FDA-Public Use
  Company Number: US-BAYER-2017-139648

PATIENT
  Age: 72 Year
  Sex: Male
  Weight: 77 kg

DRUGS (3)
  1. MIRALAX [Suspect]
     Active Substance: POLYETHYLENE GLYCOL 3350
     Indication: GASTROINTESTINAL DISORDER
     Dosage: 3 TEASPOONS; OCCASIONALLY
     Route: 048
  2. MIRALAX [Suspect]
     Active Substance: POLYETHYLENE GLYCOL 3350
     Indication: GASTROINTESTINAL DISORDER
     Dosage: 3 TEASPOONS; OCCASIONALLY
     Route: 048
     Dates: start: 2013
  3. MIRALAX [Suspect]
     Active Substance: POLYETHYLENE GLYCOL 3350
     Indication: GASTROINTESTINAL DISORDER
     Dosage: 1 DF, UNK; OCCASIONALLY
     Route: 048
     Dates: start: 2012, end: 2013

REACTIONS (3)
  - Drug prescribing error [Unknown]
  - Incorrect dosage administered [Unknown]
  - Frequent bowel movements [Unknown]
